FAERS Safety Report 12126847 (Version 2)
Quarter: 2016Q2

REPORT INFORMATION
  Report Type: Report from Study
  Country: US (occurrence: US)
  Receive Date: 20160229
  Receipt Date: 20160422
  Transmission Date: 20160815
  Serious: Yes (Hospitalization)
  Sender: FDA-Public Use
  Company Number: US-ACTELION-A-NJ2015-123292

PATIENT
  Age: 24 Year
  Sex: Female

DRUGS (6)
  1. OPSUMIT [Suspect]
     Active Substance: MACITENTAN
     Indication: PULMONARY ARTERIAL HYPERTENSION
     Dosage: 10 MG, QD
     Route: 048
     Dates: start: 20160202
  2. VELETRI [Suspect]
     Active Substance: EPOPROSTENOL
     Indication: PULMONARY ARTERIAL HYPERTENSION
     Dosage: 24 NG/KG, PER MIN
     Route: 042
     Dates: start: 20150824
  3. VELETRI [Suspect]
     Active Substance: EPOPROSTENOL
     Dosage: 22 NG/KG, PER MIN
     Route: 042
     Dates: start: 20150824
  4. WARFARIN [Concomitant]
     Active Substance: WARFARIN
  5. VELETRI [Suspect]
     Active Substance: EPOPROSTENOL
     Dosage: 30 NG/KG, PER MIN
     Route: 042
     Dates: start: 20150809, end: 2015
  6. ADCIRCA [Concomitant]
     Active Substance: TADALAFIL

REACTIONS (16)
  - Catheter site erythema [Unknown]
  - Catheter placement [Unknown]
  - Drug hypersensitivity [Unknown]
  - Back pain [Unknown]
  - Headache [Unknown]
  - Flushing [Unknown]
  - Urticaria [Unknown]
  - Diarrhoea [Not Recovered/Not Resolved]
  - Catheter site pruritus [Unknown]
  - Dry skin [Unknown]
  - Nausea [Unknown]
  - Catheter site inflammation [Unknown]
  - Catheter site haemorrhage [Unknown]
  - Device related infection [Unknown]
  - Vomiting [Not Recovered/Not Resolved]
  - Pain in jaw [Unknown]

NARRATIVE: CASE EVENT DATE: 20150829
